FAERS Safety Report 16996856 (Version 1)
Quarter: 2019Q4

REPORT INFORMATION
  Report Type: Spontaneous
  Country: US (occurrence: US)
  Receive Date: 20191105
  Receipt Date: 20191105
  Transmission Date: 20200122
  Serious: No
  Sender: FDA-Public Use
  Company Number: US-BIOGEN-2019BI00801172

PATIENT
  Sex: Female

DRUGS (3)
  1. TYSABRI [Suspect]
     Active Substance: NATALIZUMAB
     Indication: MULTIPLE SCLEROSIS
     Route: 065
     Dates: start: 20130930, end: 20180417
  2. CRANBERRY JUICE [Concomitant]
     Active Substance: CRANBERRY JUICE
     Indication: PRODUCT USED FOR UNKNOWN INDICATION
     Route: 065
  3. CISTEX [Concomitant]
     Indication: PRODUCT USED FOR UNKNOWN INDICATION
     Route: 065

REACTIONS (1)
  - Off label use [Not Recovered/Not Resolved]
